FAERS Safety Report 9003054 (Version 2)
Quarter: 2013Q4

REPORT INFORMATION
  Report Type: Report from Study
  Country: PT (occurrence: PT)
  Receive Date: 20130108
  Receipt Date: 20131017
  Transmission Date: 20140711
  Serious: Yes (Death)
  Sender: FDA-Public Use
  Company Number: PT-ROCHE-1177515

PATIENT
  Sex: Male

DRUGS (12)
  1. AVODART [Concomitant]
     Route: 065
     Dates: start: 1995
  2. ALPRAZOLAM [Concomitant]
     Route: 065
     Dates: start: 1996
  3. DAFLON (PORTUGAL) [Concomitant]
  4. RANIBIZUMAB [Suspect]
     Indication: AGE-RELATED MACULAR DEGENERATION
     Route: 050
     Dates: start: 20110413
  5. RANIBIZUMAB [Suspect]
     Route: 050
     Dates: start: 20120622
  6. GLUCOVANCE [Concomitant]
     Route: 065
     Dates: start: 2007
  7. LOSARTAN [Concomitant]
     Route: 065
     Dates: start: 2001
  8. ZYLORIC [Concomitant]
     Route: 065
     Dates: start: 2000
  9. ISMO [Concomitant]
     Route: 065
     Dates: start: 2001
  10. CARTIA (PORTUGAL) [Concomitant]
     Route: 065
     Dates: start: 1996
  11. BETAHISTINE [Concomitant]
     Route: 065
     Dates: start: 1999
  12. DOXAZOSIN MESILATE [Concomitant]
     Route: 065
     Dates: start: 1995

REACTIONS (1)
  - Myocardial infarction [Fatal]
